FAERS Safety Report 8129789-5 (Version None)
Quarter: 2012Q1

REPORT INFORMATION
  Report Type: 
  Country: None (occurrence: None)
  Receive Date: 20120210
  Receipt Date: 20120210
  Transmission Date: 20120608
  Serious: Yes (Other)
  Sender: FDA-Public Use
  Company Number: None

PATIENT
  Age: 17 Year
  Sex: Female
  Weight: 79.378 kg

DRUGS (1)
  1. CIPROFLOXACIN [Suspect]
     Indication: URINARY TRACT INFECTION
     Dosage: EVERY 12 HOURS ONE TABLET
     Dates: start: 20111201, end: 20111211

REACTIONS (8)
  - VAGINAL HAEMORRHAGE [None]
  - LABORATORY TEST ABNORMAL [None]
  - MENTAL DISORDER [None]
  - BLOOD URINE PRESENT [None]
  - DEPRESSION [None]
  - SUICIDAL IDEATION [None]
  - ANXIETY [None]
  - FATIGUE [None]
